FAERS Safety Report 25848799 (Version 2)
Quarter: 2025Q3

REPORT INFORMATION
  Report Type: Spontaneous
  Country: US (occurrence: US)
  Receive Date: 20250925
  Receipt Date: 20250925
  Transmission Date: 20251021
  Serious: Yes (Other)
  Sender: GILEAD
  Company Number: US-GILEAD-2025-0727703

PATIENT
  Age: 37 Year
  Sex: Male

DRUGS (1)
  1. BIKTARVY [Suspect]
     Active Substance: BICTEGRAVIR SODIUM\EMTRICITABINE\TENOFOVIR ALAFENAMIDE FUMARATE
     Indication: HIV infection
     Route: 065

REACTIONS (6)
  - Hallucination [Unknown]
  - Self-destructive behaviour [Unknown]
  - Formication [Not Recovered/Not Resolved]
  - Scabies [Unknown]
  - Skin disorder [Unknown]
  - Product dose omission issue [Unknown]
